FAERS Safety Report 9572226 (Version 1)
Quarter: 2013Q4

REPORT INFORMATION
  Report Type: Spontaneous
  Country: US (occurrence: US)
  Receive Date: 20131001
  Receipt Date: 20131001
  Transmission Date: 20140711
  Serious: No
  Sender: FDA-Public Use
  Company Number: US-BIOGENIDEC-2013BI068246

PATIENT
  Age: 56 Year
  Sex: Female

DRUGS (12)
  1. TECFIDERA [Suspect]
     Indication: MULTIPLE SCLEROSIS
     Route: 048
     Dates: start: 201305, end: 201306
  2. TECFIDERA [Suspect]
     Indication: MULTIPLE SCLEROSIS
     Route: 048
     Dates: start: 201306, end: 201307
  3. TECFIDERA [Suspect]
     Indication: MULTIPLE SCLEROSIS
     Route: 048
     Dates: start: 201307, end: 20130720
  4. NEURONTIN [Concomitant]
     Indication: NEUROPATHY PERIPHERAL
     Dates: start: 1986
  5. NEURONTIN [Concomitant]
     Indication: RESTLESS LEGS SYNDROME
     Dates: start: 1986
  6. HYDROCODONE [Concomitant]
     Indication: BACK PAIN
     Dates: start: 1980
  7. LISINOPRIL [Concomitant]
     Indication: HYPERTENSION
  8. FUROSEMIDE [Concomitant]
     Indication: CARDIAC OUTPUT DECREASED
  9. FUROSEMIDE [Concomitant]
     Indication: CARDIAC FAILURE
  10. CARVEDILOL [Concomitant]
     Indication: CARDIAC OUTPUT DECREASED
  11. CARVEDILOL [Concomitant]
     Indication: CARDIAC FAILURE
  12. KEPRA [Concomitant]
     Indication: CONVULSION

REACTIONS (5)
  - Feeling hot [Recovered/Resolved]
  - Back pain [Recovered/Resolved]
  - Muscular weakness [Not Recovered/Not Resolved]
  - Fatigue [Recovered/Resolved]
  - Restless legs syndrome [Recovered/Resolved]
